FAERS Safety Report 7358630-3 (Version None)
Quarter: 2011Q1

REPORT INFORMATION
  Report Type: 
  Country: None (occurrence: None)
  Receive Date: 20110317
  Receipt Date: 20110311
  Transmission Date: 20110831
  Serious: Yes (Death, Hospitalization)
  Sender: FDA-Public Use
  Company Number: JP-JNJFOC-20101002583

PATIENT
  Sex: Female
  Weight: 54 kg

DRUGS (27)
  1. GRANISETRON HCL [Concomitant]
     Indication: PROPHYLAXIS
     Route: 042
  2. CARBOPLATIN [Concomitant]
     Route: 042
  3. CALONAL [Concomitant]
     Indication: OVARIAN CANCER RECURRENT
     Route: 048
  4. FLUMARIN [Concomitant]
     Route: 042
  5. DOXORUBICIN HCL [Suspect]
     Dosage: CYCLE 6
     Route: 042
  6. FLUMARIN [Concomitant]
     Route: 042
  7. DOXORUBICIN HCL [Suspect]
     Dosage: CYCLE 7
     Route: 042
  8. CARBOPLATIN [Suspect]
     Indication: PRODUCT USED FOR UNKNOWN INDICATION
     Route: 042
  9. MEVALOTIN [Concomitant]
     Indication: PRODUCT USED FOR UNKNOWN INDICATION
     Route: 048
  10. DOPAMINE [Concomitant]
     Route: 042
  11. DOXORUBICIN HCL [Suspect]
     Dosage: CYCLE 1
     Route: 042
  12. MAINTATE [Concomitant]
     Indication: PRODUCT USED FOR UNKNOWN INDICATION
     Route: 048
  13. SENNOSIDE [Concomitant]
     Indication: PRODUCT USED FOR UNKNOWN INDICATION
     Route: 048
  14. DEXART [Concomitant]
     Indication: PROPHYLAXIS
     Route: 042
  15. DOXORUBICIN HCL [Suspect]
     Indication: OVARIAN CANCER RECURRENT
     Dosage: CYCLE 8
     Route: 042
  16. DOXORUBICIN HCL [Suspect]
     Dosage: CYCLE 5
     Route: 042
  17. PRIMPERAN TAB [Concomitant]
     Indication: PROPHYLAXIS
     Route: 048
  18. ZANTAC [Concomitant]
     Indication: PROPHYLAXIS
     Route: 042
  19. DOXORUBICIN HCL [Suspect]
     Dosage: CYCLE 4
     Route: 042
  20. DOXORUBICIN HCL [Suspect]
     Dosage: CYCLE 3
     Route: 042
  21. MAGMITT [Concomitant]
     Indication: PRODUCT USED FOR UNKNOWN INDICATION
     Route: 048
  22. LENDORMIN D [Concomitant]
     Indication: PRODUCT USED FOR UNKNOWN INDICATION
     Route: 048
  23. OXINORM [Concomitant]
     Indication: OVARIAN CANCER RECURRENT
     Route: 048
  24. BETAMETHASONE [Concomitant]
     Indication: OVARIAN CANCER RECURRENT
     Route: 042
  25. FAMOTIDINE [Concomitant]
     Indication: PRODUCT USED FOR UNKNOWN INDICATION
     Route: 048
  26. FENTANYL CITRATE [Concomitant]
     Indication: OVARIAN CANCER RECURRENT
     Route: 065
  27. DOXORUBICIN HCL [Suspect]
     Dosage: CYCLE 2
     Route: 042

REACTIONS (2)
  - OVARIAN CANCER [None]
  - RENAL FAILURE [None]
